FAERS Safety Report 8625488-1 (Version None)
Quarter: 2012Q3

REPORT INFORMATION
  Report Type: 
  Country: None (occurrence: None)
  Receive Date: 20120827
  Receipt Date: 20120816
  Transmission Date: 20120928
  Serious: Yes (Hospitalization)
  Sender: FDA-Public Use
  Company Number: VE-ROCHE-1067428

PATIENT
  Sex: Female

DRUGS (6)
  1. VITAMIN B-12 [Concomitant]
  2. BUDESONIDE [Suspect]
     Indication: LUNG DISORDER
     Dates: start: 20100101
  3. FORADIL [Suspect]
     Indication: LUNG DISORDER
     Dates: start: 20100101
  4. CALCIUM [Concomitant]
  5. FOLIC ACID [Concomitant]
  6. XOLAIR [Suspect]
     Indication: LUNG DISORDER
     Dates: start: 20111001, end: 20120301

REACTIONS (5)
  - HAEMOGLOBIN DECREASED [None]
  - FATIGUE [None]
  - TACHYCARDIA [None]
  - ASTHENIA [None]
  - MALAISE [None]
